FAERS Safety Report 9660719 (Version 2)
Quarter: 2014Q1

REPORT INFORMATION
  Report Type: Spontaneous
  Country: US (occurrence: US)
  Receive Date: 20131031
  Receipt Date: 20140124
  Transmission Date: 20141002
  Serious: Yes (Congenital Anomaly, Other)
  Sender: FDA-Public Use
  Company Number: US-PFIZER INC-2013308714

PATIENT
  Sex: Male

DRUGS (2)
  1. ZOLOFT [Suspect]
     Indication: DEPRESSION
     Dosage: UNK
     Route: 064
     Dates: start: 20080731
  2. SERTRALINE HCL [Suspect]
     Indication: DEPRESSION
     Dosage: UNK
     Route: 064
     Dates: start: 20080731

REACTIONS (10)
  - Maternal exposure during pregnancy [Unknown]
  - Congenital pulmonary valve atresia [Unknown]
  - Congenital tricuspid valve atresia [Unknown]
  - Heart disease congenital [Unknown]
  - Heart disease congenital [Unknown]
  - Heart disease congenital [Unknown]
  - Congenital aortic valve stenosis [Unknown]
  - Pulmonary artery atresia [Unknown]
  - Congenital tricuspid valve stenosis [Unknown]
  - Bicuspid aortic valve [Unknown]
